FAERS Safety Report 24030440 (Version 1)
Quarter: 2024Q2

REPORT INFORMATION
  Report Type: Spontaneous
  Country: US (occurrence: US)
  Receive Date: 20240628
  Receipt Date: 20240628
  Transmission Date: 20240716
  Serious: No
  Sender: FDA-Public Use
  Company Number: US-LEX-000350

PATIENT
  Sex: Female

DRUGS (1)
  1. INPEFA [Suspect]
     Active Substance: SOTAGLIFLOZIN
     Indication: Cardiac failure
     Route: 065
     Dates: start: 20240604

REACTIONS (1)
  - Diarrhoea [Unknown]
